FAERS Safety Report 7256897-3 (Version None)
Quarter: 2011Q1

REPORT INFORMATION
  Report Type: 
  Country: None (occurrence: None)
  Receive Date: 20110129
  Receipt Date: 20100722
  Transmission Date: 20110831
  Serious: No
  Sender: FDA-Public Use
  Company Number: US-ABBOTT-10P-163-0659466-00

PATIENT
  Age: 47 Year
  Sex: Male

DRUGS (13)
  1. REMERON [Concomitant]
     Indication: ANXIETY
  2. KLONOPIN [Concomitant]
     Indication: NEURALGIA
     Dosage: AT BEDTIME
  3. CARAFATE [Concomitant]
     Indication: GASTRITIS
     Dosage: AT BEDTIME
  4. HUMIRA [Suspect]
     Indication: RHEUMATOID ARTHRITIS
     Dates: start: 20090801
  5. TRAMADOL HCL [Concomitant]
     Indication: PAIN
  6. REMERON [Concomitant]
     Indication: INSOMNIA
     Dosage: AT BEDTIME
  7. VICODIN [Concomitant]
     Indication: PAIN
     Dosage: 7.5/500MG X 2 IN THE MORNING
  8. FLOMAX [Concomitant]
     Indication: NERVE COMPRESSION
  9. ZANTAC [Concomitant]
     Indication: GASTRITIS
  10. MULTI-VITAMIN [Concomitant]
     Indication: PRODUCT USED FOR UNKNOWN INDICATION
     Dosage: DAILY
  11. HUMIRA [Suspect]
  12. FLOMAX [Concomitant]
     Indication: DYSURIA
  13. REMERON [Concomitant]
     Indication: NEURALGIA

REACTIONS (2)
  - RASH MACULAR [None]
  - SINUSITIS [None]
